FAERS Safety Report 19267611 (Version 2)
Quarter: 2022Q1

REPORT INFORMATION
  Report Type: Spontaneous
  Country: US (occurrence: US)
  Receive Date: 20210517
  Receipt Date: 20220321
  Transmission Date: 20220423
  Serious: No
  Sender: FDA-Public Use
  Company Number: US-PFIZER INC-2021235805

PATIENT
  Age: 9 Year
  Sex: Female

DRUGS (1)
  1. IBRANCE [Suspect]
     Active Substance: PALBOCICLIB
     Indication: Brain neoplasm
     Dosage: 75 MG

REACTIONS (2)
  - Off label use [Unknown]
  - Platelet count decreased [Unknown]
